FAERS Safety Report 6821481-X (Version None)
Quarter: 2010Q3

REPORT INFORMATION
  Report Type: 
  Country: None (occurrence: None)
  Receive Date: 20100707
  Receipt Date: 20080922
  Transmission Date: 20110219
  Serious: No
  Sender: FDA-Public Use
  Company Number: US-PFIZER INC-2008080657

PATIENT
  Sex: Female
  Weight: 68.181 kg

DRUGS (4)
  1. ZOLOFT [Suspect]
     Indication: ANXIETY
  2. ZOLOFT [Suspect]
     Indication: DEPRESSION
  3. ACETYLSALICYLIC ACID [Concomitant]
  4. VITAMINS [Concomitant]

REACTIONS (2)
  - INFLUENZA LIKE ILLNESS [None]
  - VERTIGO [None]
